FAERS Safety Report 18925994 (Version 2)
Quarter: 2025Q2

REPORT INFORMATION
  Report Type: Spontaneous
  Country: US (occurrence: US)
  Receive Date: 20210222
  Receipt Date: 20250627
  Transmission Date: 20250717
  Serious: Yes (Hospitalization, Other)
  Sender: AUROBINDO
  Company Number: US-MLMSERVICE-20210209-2714312-1

PATIENT
  Age: 66 Year
  Sex: Male

DRUGS (11)
  1. LORAZEPAM [Suspect]
     Active Substance: LORAZEPAM
     Indication: Major depression
     Dosage: 1 MILLIGRAM, ONCE A DAY (EVERY MORNING)
     Route: 065
  2. LORAZEPAM [Suspect]
     Active Substance: LORAZEPAM
     Indication: Major depression
     Dosage: 2 MILLIGRAM, ONCE A DAY (EVERY EVENING)
     Route: 065
  3. LORAZEPAM [Suspect]
     Active Substance: LORAZEPAM
     Dosage: 0.5 MILLIGRAM, FOUR TIMES/DAY
     Route: 042
  4. LORAZEPAM [Suspect]
     Active Substance: LORAZEPAM
     Dosage: 0.25 MILLIGRAM, FOUR TIMES/DAY
     Route: 042
  5. FLUOXETINE [Suspect]
     Active Substance: FLUOXETINE HYDROCHLORIDE
     Indication: Depression
     Dosage: 20 MILLIGRAM, ONCE A DAY
     Route: 065
  6. ESCITALOPRAM [Suspect]
     Active Substance: ESCITALOPRAM OXALATE
     Indication: Seizure
     Route: 065
  7. QUETIAPINE [Suspect]
     Active Substance: QUETIAPINE
     Indication: Seizure
     Route: 065
  8. LEVETIRACETAM [Concomitant]
     Active Substance: LEVETIRACETAM
     Indication: Major depression
     Dosage: 750 MILLIGRAM, ONCE A DAY (EVERY NIGHTLY (EXTENDED-RELEASE))
     Route: 042
  9. LEVETIRACETAM [Concomitant]
     Active Substance: LEVETIRACETAM
     Dosage: 1000 MILLIGRAM, TWO TIMES A DAY
     Route: 065
  10. ZONISAMIDE [Concomitant]
     Active Substance: ZONISAMIDE
     Indication: Major depression
     Dosage: 300 MILLIGRAM, ONCE A DAY (EVERY NIGHTLY)
     Route: 048
  11. VENLAFAXINE [Concomitant]
     Active Substance: VENLAFAXINE HYDROCHLORIDE
     Indication: Product used for unknown indication
     Route: 048

REACTIONS (3)
  - Cognitive disorder [Unknown]
  - Condition aggravated [Unknown]
  - Drug ineffective [Unknown]
